FAERS Safety Report 22025520 (Version 1)
Quarter: 2023Q1

REPORT INFORMATION
  Report Type: Spontaneous
  Country: US (occurrence: US)
  Receive Date: 20230223
  Receipt Date: 20230223
  Transmission Date: 20230418
  Serious: Yes (Other)
  Sender: FDA-Public Use
  Company Number: US-BRISTOL-MYERS SQUIBB COMPANY-2023-023955

PATIENT
  Sex: Male

DRUGS (2)
  1. ELIQUIS [Suspect]
     Active Substance: APIXABAN
     Indication: Atrial fibrillation
     Dates: start: 20230209
  2. ELIQUIS [Suspect]
     Active Substance: APIXABAN
     Indication: Aortic valve disease

REACTIONS (5)
  - Arrhythmia [Unknown]
  - Loss of consciousness [Unknown]
  - Feeling hot [Unknown]
  - Flushing [Unknown]
  - Off label use [Unknown]

NARRATIVE: CASE EVENT DATE: 20230201
